FAERS Safety Report 7444616-7 (Version None)
Quarter: 2011Q2

REPORT INFORMATION
  Report Type: 
  Country: None (occurrence: None)
  Receive Date: 20110427
  Receipt Date: 20110427
  Transmission Date: 20111010
  Serious: Yes (Congenital Anomaly)
  Sender: FDA-Public Use
  Company Number: None

PATIENT
  Age: 38 Year
  Sex: Male
  Weight: 80.2867 kg

DRUGS (2)
  1. TACROLIMUS [Suspect]
     Indication: TRANSPLANT REJECTION
     Dosage: 1 MG BID PO
     Route: 048
     Dates: start: 20100502, end: 20110426
  2. MYCOPHENOLATE MOFETIL [Suspect]
     Indication: TRANSPLANT REJECTION
     Dosage: 500 MG BD PO
     Route: 048
     Dates: start: 20100502, end: 20110426

REACTIONS (4)
  - ABDOMINAL DISTENSION [None]
  - INGUINAL HERNIA REPAIR [None]
  - DRUG EXPOSURE DURING PREGNANCY [None]
  - PREGNANCY [None]
